FAERS Safety Report 8827585 (Version 3)
Quarter: 2013Q1

REPORT INFORMATION
  Report Type: Spontaneous
  Country: GB (occurrence: GB)
  Receive Date: 20121008
  Receipt Date: 20130103
  Transmission Date: 20140127
  Serious: Yes (Hospitalization, Other)
  Sender: FDA-Public Use
  Company Number: GB-JNJFOC-20121000168

PATIENT
  Sex: Male

DRUGS (2)
  1. XEPLION [Suspect]
     Indication: SCHIZOPHRENIA
     Route: 030
     Dates: start: 201206
  2. UNKNOWN MEDICATION [Suspect]
     Indication: SCHIZOPHRENIA
     Route: 065

REACTIONS (1)
  - Schizophrenia [Not Recovered/Not Resolved]
